FAERS Safety Report 11929361 (Version 1)
Quarter: 2016Q1

REPORT INFORMATION
  Report Type: Spontaneous
  Country: DE (occurrence: DE)
  Receive Date: 20160120
  Receipt Date: 20160120
  Transmission Date: 20160526
  Serious: Yes (Other)
  Sender: FDA-Public Use
  Company Number: DE-AUROBINDO-AUR-APL-2016-00219

PATIENT
  Sex: Female

DRUGS (2)
  1. RAMIPRIL. [Suspect]
     Active Substance: RAMIPRIL
     Indication: PRODUCT USED FOR UNKNOWN INDICATION
     Route: 065
  2. RAMILICH [Suspect]
     Active Substance: RAMIPRIL
     Indication: PRODUCT USED FOR UNKNOWN INDICATION
     Route: 065

REACTIONS (22)
  - Sleep attacks [Unknown]
  - Apathy [Unknown]
  - Weight fluctuation [Unknown]
  - Erythema [Recovered/Resolved]
  - Nasal congestion [Unknown]
  - Fatigue [Unknown]
  - Tongue coated [Unknown]
  - Dry mouth [Unknown]
  - Blood pressure increased [Recovered/Resolved]
  - Eye swelling [Recovered/Resolved]
  - Abdominal distension [Unknown]
  - Pruritus [Recovered/Resolved]
  - Constipation [Unknown]
  - Hypersensitivity [Recovered/Resolved]
  - Oedema peripheral [Unknown]
  - Cough [Unknown]
  - Somnolence [Unknown]
  - Micturition urgency [Unknown]
  - Swelling face [Recovered/Resolved]
  - Reading disorder [Unknown]
  - Abdominal pain [Unknown]
  - Disturbance in attention [Unknown]
